FAERS Safety Report 9513312 (Version 1)
Quarter: 2013Q1

REPORT INFORMATION
  Report Type: Spontaneous
  Country: US (occurrence: None)
  Receive Date: 20130305
  Receipt Date: 20130305
  Transmission Date: 20140127
  Serious: Yes (Life-Threatening, Hospitalization, Other)
  Sender: FDA-Public Use
  Company Number: 163-21880-12021766

PATIENT
  Age: 61 Year
  Sex: Male

DRUGS (33)
  1. REVLIMID [Suspect]
     Indication: PLASMA CELL MYELOMA
     Dosage: 1 IN 1 D
     Route: 048
     Dates: start: 200909
  2. VELCADE [Concomitant]
  3. DECADRON [Concomitant]
  4. SODIUM CHLORIDE [Concomitant]
  5. SENNA [Concomitant]
  6. GUAIFENESIN [Concomitant]
  7. BACLOFEN [Concomitant]
  8. DIAZEPAM [Concomitant]
  9. DOCUSATE [Concomitant]
  10. OXYCODONE [Concomitant]
  11. DEXAMETHASONE [Concomitant]
  12. ACYCLOVIR [Concomitant]
  13. TRIMETHOPRIM-SULFAMETHOXAZOLE [Concomitant]
  14. GABAPENTIN [Concomitant]
  15. ALBUTEROL [Concomitant]
  16. TESTOSTERONE CYPIONATE [Concomitant]
  17. VARDENAFIL [Concomitant]
  18. VITAMIN D3 [Concomitant]
  19. FOLIC ACID [Concomitant]
  20. ACETYL L-CARNITINE [Concomitant]
  21. CYANOCOBALAMIN [Concomitant]
  22. L-GLUTAMINE [Concomitant]
  23. CETRIZINE [Concomitant]
  24. NIACIN SR [Concomitant]
  25. VITAMIN B-12 [Concomitant]
  26. ASPIRIN [Concomitant]
  27. PROCRIT [Concomitant]
  28. AZITHROMYCIN [Concomitant]
  29. LACTOBACILLUS ACIDOPHILUS-PECTIN [Concomitant]
  30. OMEGA 3 FATTY ACIDS [Concomitant]
  31. NEUPOGEN [Concomitant]
  32. IVF [Concomitant]
  33. PAMIDRONATE [Concomitant]

REACTIONS (5)
  - Febrile neutropenia [None]
  - Clostridium difficile colitis [None]
  - Deep vein thrombosis [None]
  - Thrombocytopenia [None]
  - Neuropathy peripheral [None]
